FAERS Safety Report 23805610 (Version 3)
Quarter: 2024Q3

REPORT INFORMATION
  Report Type: Spontaneous
  Country: CA (occurrence: CA)
  Receive Date: 20240502
  Receipt Date: 20240705
  Transmission Date: 20241017
  Serious: No
  Sender: CSL BEHRING
  Company Number: CA-BEH-2024171422

PATIENT
  Age: 72 Year
  Sex: Male

DRUGS (2)
  1. PRIVIGEN [Suspect]
     Active Substance: HUMAN IMMUNOGLOBULIN G
     Indication: Antisynthetase syndrome
     Dosage: 40 G, TOT
     Route: 065
     Dates: start: 20231205, end: 20231205
  2. PREDNISONE [Concomitant]
     Active Substance: PREDNISONE

REACTIONS (6)
  - Interstitial lung disease [Fatal]
  - Antisynthetase syndrome [Fatal]
  - Transfusion reaction [Unknown]
  - Off label use [Unknown]
  - Somnolence [Unknown]
  - Rales [Unknown]

NARRATIVE: CASE EVENT DATE: 20231205
